FAERS Safety Report 7986729-7 (Version None)
Quarter: 2011Q4

REPORT INFORMATION
  Report Type: 
  Country: None (occurrence: None)
  Receive Date: 20111216
  Receipt Date: 20110217
  Transmission Date: 20120403
  Serious: No
  Sender: FDA-Public Use
  Company Number: US-BRISTOL-MYERS SQUIBB COMPANY-15556798

PATIENT
  Age: 53 Year
  Sex: Female
  Weight: 91 kg

DRUGS (4)
  1. PRISTIQ [Concomitant]
  2. LAMICTAL [Concomitant]
  3. VITAMIN TAB [Concomitant]
  4. ABILIFY [Suspect]
     Indication: DEPRESSION
     Dosage: START WITH 5 MG,THEN INCREASED TO 10 MG,AGAIN DOSE REDUCED TO 5MG.

REACTIONS (6)
  - ANXIETY [None]
  - THINKING ABNORMAL [None]
  - PARANOIA [None]
  - ANGER [None]
  - WEIGHT INCREASED [None]
  - PAIN [None]
